FAERS Safety Report 7943151-7 (Version None)
Quarter: 2011Q4

REPORT INFORMATION
  Report Type: 
  Country: None (occurrence: None)
  Receive Date: 20111128
  Receipt Date: 20111116
  Transmission Date: 20120403
  Serious: Yes (Hospitalization)
  Sender: FDA-Public Use
  Company Number: PHHY2011TR101661

PATIENT
  Sex: Female
  Weight: 50 kg

DRUGS (5)
  1. EVEROLIMUS [Suspect]
     Dosage: 1 MG, BID
     Dates: start: 20110726, end: 20110819
  2. NEORAL [Concomitant]
     Dosage: (50 + 50) UNIT UNKNOWN
     Dates: start: 20110701, end: 20110725
  3. NEORAL [Concomitant]
     Dosage: (75 + 50 ) UNIT UNKNOWN
     Dates: start: 20110725, end: 20110819
  4. EVEROLIMUS [Suspect]
     Dosage: 0.75
     Dates: start: 20110701, end: 20110725
  5. NEORAL [Concomitant]
     Dosage: (50 + 50 ) UNIT UNKNOWN
     Dates: start: 20110819, end: 20110820

REACTIONS (1)
  - RENAL TUBULAR NECROSIS [None]
